FAERS Safety Report 4309422-0 (Version None)
Quarter: 2004Q1

REPORT INFORMATION
  Report Type: 
  Country: None (occurrence: None)
  Receive Date: 20040301
  Receipt Date: 20040224
  Transmission Date: 20041129
  Serious: Yes (Hospitalization)
  Sender: FDA-Public Use
  Company Number: 2004-02-1709

PATIENT

DRUGS (1)
  1. CLARITIN [Suspect]
     Dosage: ORAL
     Route: 048

REACTIONS (1)
  - HEPATITIS [None]
